FAERS Safety Report 18643420 (Version 1)
Quarter: 2020Q4

REPORT INFORMATION
  Report Type: Spontaneous
  Country: US (occurrence: US)
  Receive Date: 20201221
  Receipt Date: 20201221
  Transmission Date: 20210114
  Serious: Yes (Hospitalization, Other)
  Sender: FDA-Public Use
  Company Number: None

PATIENT
  Age: 68 Year
  Sex: Male

DRUGS (6)
  1. DICLOFENAC GEL [Concomitant]
     Active Substance: DICLOFENAC
  2. CABERGOLINE. [Concomitant]
     Active Substance: CABERGOLINE
  3. ENBREL [Suspect]
     Active Substance: ETANERCEPT
     Indication: RHEUMATOID ARTHRITIS
     Dosage: ?          OTHER FREQUENCY:EVERY 7 DAYS;?
     Route: 058
     Dates: start: 20180326
  4. OXYCODONE [Concomitant]
     Active Substance: OXYCODONE
  5. NORTRIPTYLIN [Concomitant]
     Active Substance: NORTRIPTYLINE
  6. LIDOCAINE. [Concomitant]
     Active Substance: LIDOCAINE

REACTIONS (1)
  - Spinal operation [None]
